FAERS Safety Report 15330001 (Version 6)
Quarter: 2019Q4

REPORT INFORMATION
  Report Type: Report from Study
  Country: CA (occurrence: CA)
  Receive Date: 20180829
  Receipt Date: 20191015
  Transmission Date: 20200122
  Serious: Yes (Other)
  Sender: FDA-Public Use
  Company Number: CA-BRISTOL-MYERS SQUIBB COMPANY-BMS-2018-077880

PATIENT
  Age: 69 Year
  Sex: Female

DRUGS (2)
  1. DULOXETINE. [Suspect]
     Active Substance: DULOXETINE
     Indication: PAIN
     Dosage: 60 MILLIGRAM
     Route: 065
  2. ABATACEPT [Suspect]
     Active Substance: ABATACEPT
     Indication: RHEUMATOID ARTHRITIS
     Dosage: 750 MG, Q4WK
     Route: 042
     Dates: start: 20130716

REACTIONS (19)
  - Urinary tract infection [Recovered/Resolved]
  - Skin laceration [Unknown]
  - Sinusitis [Recovered/Resolved]
  - Sneezing [Unknown]
  - Rhinorrhoea [Unknown]
  - Back disorder [Recovered/Resolved]
  - Tooth disorder [Recovered/Resolved]
  - Somnolence [Recovered/Resolved]
  - Fall [Recovering/Resolving]
  - Coordination abnormal [Unknown]
  - Head injury [Unknown]
  - Dental caries [Recovered/Resolved]
  - Nasopharyngitis [Unknown]
  - Contusion [Unknown]
  - Vascular access complication [Unknown]
  - Gait disturbance [Unknown]
  - Multiple sclerosis [Unknown]
  - Pain [Recovered/Resolved]
  - Dehydration [Unknown]

NARRATIVE: CASE EVENT DATE: 20180730
